FAERS Safety Report 18227173 (Version 1)
Quarter: 2020Q3

REPORT INFORMATION
  Report Type: Spontaneous
  Country: US (occurrence: US)
  Receive Date: 20200902
  Receipt Date: 20200902
  Transmission Date: 20201103
  Serious: Yes (Death)
  Sender: FDA-Public Use
  Company Number: None

PATIENT
  Age: 63 Year
  Sex: Male

DRUGS (10)
  1. NARCAN [Concomitant]
     Active Substance: NALOXONE HYDROCHLORIDE
  2. TADALAFIL. [Concomitant]
     Active Substance: TADALAFIL
  3. NORCO [Concomitant]
     Active Substance: ACETAMINOPHEN\HYDROCODONE BITARTRATE
  4. K?TAB [Concomitant]
     Active Substance: POTASSIUM CHLORIDE
  5. PRADAXA [Concomitant]
     Active Substance: DABIGATRAN ETEXILATE MESYLATE
  6. METOPROLOL. [Concomitant]
     Active Substance: METOPROLOL
  7. ATROVASTATIN [Concomitant]
     Active Substance: ATORVASTATIN CALCIUM
  8. AMBRISENTAN 10MG TABLETS 30/BO: 10MG [Suspect]
     Active Substance: AMBRISENTAN
     Indication: COR PULMONALE CHRONIC
     Route: 048
     Dates: start: 201410, end: 202008
  9. LASIX [Concomitant]
     Active Substance: FUROSEMIDE
  10. TORSEMIDE. [Concomitant]
     Active Substance: TORSEMIDE

REACTIONS (1)
  - Death [None]

NARRATIVE: CASE EVENT DATE: 20200825
